FAERS Safety Report 4865210-8 (Version None)
Quarter: 2005Q4

REPORT INFORMATION
  Report Type: 
  Country: None (occurrence: None)
  Receive Date: 20051223
  Receipt Date: 20051209
  Transmission Date: 20060501
  Serious: Yes (Hospitalization)
  Sender: FDA-Public Use
  Company Number: NL-GLAXOSMITHKLINE-B0403173A

PATIENT
  Age: 50 Year
  Sex: Male
  Weight: 82.6 kg

DRUGS (1)
  1. TOPOTECAN [Suspect]
     Indication: NEOPLASM
     Dosage: 2.3MGM2 SINGLE DOSE
     Route: 048
     Dates: start: 20051205

REACTIONS (4)
  - DEHYDRATION [None]
  - NAUSEA [None]
  - STENT OCCLUSION [None]
  - VOMITING [None]
